FAERS Safety Report 7486739-2 (Version None)
Quarter: 2011Q2

REPORT INFORMATION
  Report Type: 
  Country: None (occurrence: None)
  Receive Date: 20110517
  Receipt Date: 20110510
  Transmission Date: 20111010
  Serious: Yes (Other)
  Sender: FDA-Public Use
  Company Number: US-TEVA-280683USA

PATIENT
  Sex: Male

DRUGS (1)
  1. AMPHETAMINE SULFATE [Suspect]

REACTIONS (3)
  - DRUG INEFFECTIVE [None]
  - WITHDRAWAL SYNDROME [None]
  - FEELING ABNORMAL [None]
